FAERS Safety Report 24423664 (Version 1)
Quarter: 2024Q4

REPORT INFORMATION
  Report Type: Report from Study
  Country: US (occurrence: US)
  Receive Date: 20241010
  Receipt Date: 20241010
  Transmission Date: 20250115
  Serious: No
  Sender: ROCHE
  Company Number: US-ROCHE-10000102085

PATIENT
  Age: 60 Year
  Sex: Female
  Weight: 68.03 kg

DRUGS (7)
  1. OCREVUS [Suspect]
     Active Substance: OCRELIZUMAB
     Indication: Relapsing-remitting multiple sclerosis
     Dosage: 300 MG ON DAY 1 AND DAY 15 THEN EVERY 6 MONTHS
     Route: 042
     Dates: start: 2022, end: 20240920
  2. LOSARTAN [Concomitant]
     Active Substance: LOSARTAN
     Indication: Hypertension
     Route: 048
  3. GABAPENTIN [Concomitant]
     Active Substance: GABAPENTIN
     Indication: Trigeminal neuralgia
     Route: 048
  4. TEGRETOL [Concomitant]
     Active Substance: CARBAMAZEPINE
     Indication: Trigeminal neuralgia
     Route: 048
     Dates: start: 2022
  5. TEGRETOL [Concomitant]
     Active Substance: CARBAMAZEPINE
     Indication: Neuralgia
  6. MEPERIDINE [Concomitant]
     Active Substance: MEPERIDINE
  7. ASPARTAME [Concomitant]
     Active Substance: ASPARTAME

REACTIONS (2)
  - Central nervous system infection [Not Recovered/Not Resolved]
  - JC polyomavirus test positive [Unknown]

NARRATIVE: CASE EVENT DATE: 20240815
